FAERS Safety Report 7156530-5 (Version None)
Quarter: 2010Q4

REPORT INFORMATION
  Report Type: 
  Country: None (occurrence: None)
  Receive Date: 20101214
  Receipt Date: 20091119
  Transmission Date: 20110411
  Serious: No
  Sender: FDA-Public Use
  Company Number: US-ASTRAZENECA-2009SE27620

PATIENT
  Age: 895 Month
  Sex: Female
  Weight: 52.2 kg

DRUGS (8)
  1. CRESTOR [Suspect]
     Route: 048
     Dates: start: 20090518
  2. CRESTOR [Suspect]
     Route: 048
  3. SYNTHROID [Concomitant]
  4. PREMARIN [Concomitant]
  5. COUMADIN [Concomitant]
  6. METOPROLOL [Concomitant]
  7. DIGOXIN [Concomitant]
  8. ASPIRIN [Concomitant]

REACTIONS (3)
  - DECREASED APPETITE [None]
  - MUSCLE SPASMS [None]
  - WEIGHT DECREASED [None]
